FAERS Safety Report 22650227 (Version 2)
Quarter: 2023Q2

REPORT INFORMATION
  Report Type: Spontaneous
  Country: US (occurrence: US)
  Receive Date: 20230628
  Receipt Date: 20230628
  Transmission Date: 20230721
  Serious: Yes (Other)
  Sender: FDA-Public Use
  Company Number: US-PFIZER INC-202300232893

PATIENT
  Age: 66 Year
  Sex: Male
  Weight: 109.77 kg

DRUGS (1)
  1. XELJANZ XR [Suspect]
     Active Substance: TOFACITINIB CITRATE
     Indication: Rheumatoid arthritis
     Dosage: 11 MG, 1X/DAY
     Route: 048

REACTIONS (8)
  - Bronchiectasis [Not Recovered/Not Resolved]
  - Diverticulitis [Recovering/Resolving]
  - Bronchiolitis [Unknown]
  - Lymphadenopathy [Recovered/Resolved]
  - Polyp [Unknown]
  - Productive cough [Unknown]
  - Large intestine infection [Unknown]
  - Gastrointestinal pain [Unknown]

NARRATIVE: CASE EVENT DATE: 20221101
